FAERS Safety Report 17804221 (Version 2)
Quarter: 2020Q2

REPORT INFORMATION
  Report Type: Spontaneous
  Country: DE (occurrence: DE)
  Receive Date: 20200519
  Receipt Date: 20200624
  Transmission Date: 20200714
  Serious: Yes (Life-Threatening, Hospitalization)
  Sender: FDA-Public Use
  Company Number: NVSC2020DE136054

PATIENT
  Sex: Female
  Weight: 62 kg

DRUGS (1)
  1. PEGFILGRASTIM [Suspect]
     Active Substance: PEGFILGRASTIM
     Indication: PRODUCT USED FOR UNKNOWN INDICATION
     Dosage: 6 MG, CYCLIC (FIRST CYCLE)
     Route: 058
     Dates: start: 20200219

REACTIONS (4)
  - Febrile neutropenia [Recovered/Resolved]
  - Infection susceptibility increased [Recovered/Resolved]
  - Pneumonia fungal [Unknown]
  - Leukopenia [Recovered/Resolved]

NARRATIVE: CASE EVENT DATE: 20200220
